FAERS Safety Report 14583274 (Version 1)
Quarter: 2018Q1

REPORT INFORMATION
  Report Type: Spontaneous
  Country: US (occurrence: US)
  Receive Date: 20180228
  Receipt Date: 20180228
  Transmission Date: 20180509
  Serious: No
  Sender: FDA-Public Use
  Company Number: US-TAIHO ONCOLOGY INC-EU-2018-00310

PATIENT
  Sex: Male

DRUGS (9)
  1. COMPAZINE [Concomitant]
     Active Substance: PROCHLORPERAZINE MALEATE
     Dosage: NI
  2. CAPECITABINE. [Concomitant]
     Active Substance: CAPECITABINE
     Dosage: NI
  3. LONSURF [Suspect]
     Active Substance: TIPIRACIL HYDROCHLORIDE\TRIFLURIDINE
     Indication: RECTAL CANCER
     Route: 048
     Dates: start: 20161231, end: 201705
  4. IMODIUM MULTI-SYMPTOM RELIEF [Concomitant]
     Active Substance: DIMETHICONE\LOPERAMIDE HYDROCHLORIDE
     Dosage: NI
  5. DULOXETINE. [Concomitant]
     Active Substance: DULOXETINE
     Dosage: NI
  6. ZOFRAN [Concomitant]
     Active Substance: ONDANSETRON HYDROCHLORIDE
     Dosage: NI
  7. SIMETHICONE (DIMETHICONE) [Concomitant]
     Active Substance: DIMETHICONE
     Dosage: NI
  8. GABAPENTIN. [Concomitant]
     Active Substance: GABAPENTIN
     Dosage: NI
  9. TRAMADOL. [Concomitant]
     Active Substance: TRAMADOL
     Dosage: NI

REACTIONS (1)
  - Drug ineffective [Unknown]
